FAERS Safety Report 5330944-8 (Version None)
Quarter: 2007Q2

REPORT INFORMATION
  Report Type: 
  Country: None (occurrence: None)
  Receive Date: 20070522
  Receipt Date: 20070509
  Transmission Date: 20071010
  Serious: Yes (Disabling, Other)
  Sender: FDA-Public Use
  Company Number: US-AMGEN-STX215138

PATIENT
  Sex: Female
  Weight: 82.6 kg

DRUGS (3)
  1. ENBREL [Suspect]
     Indication: RHEUMATOID ARTHRITIS
     Route: 058
     Dates: start: 20040907
  2. ENBREL [Suspect]
     Indication: SCLERODERMA
  3. METHOTREXATE [Concomitant]
     Route: 058
     Dates: start: 20020101

REACTIONS (1)
  - ELECTROCARDIOGRAM ABNORMAL [None]
